FAERS Safety Report 5240831-1 (Version None)
Quarter: 2007Q1

REPORT INFORMATION
  Report Type: 
  Country: None (occurrence: None)
  Receive Date: 20061208
  Receipt Date: 20050613
  Transmission Date: 20070707
  Serious: Yes (Other)
  Sender: FDA-Public Use
  Company Number: 2005UW24337

PATIENT
  Age: 65 Year
  Sex: Female
  Weight: 68.038 kg

DRUGS (4)
  1. CRESTOR [Suspect]
     Indication: HYPERCHOLESTEROLAEMIA
     Dosage: 0 MG PO
     Route: 048
     Dates: start: 20031001, end: 20041101
  2. NORVASC [Concomitant]
  3. COREG [Concomitant]
  4. DIURETICS [Concomitant]

REACTIONS (2)
  - CYSTITIS [None]
  - KIDNEY INFECTION [None]
